FAERS Safety Report 9617816 (Version 2)
Quarter: 2013Q4

REPORT INFORMATION
  Report Type: Spontaneous
  Country: US (occurrence: None)
  Receive Date: 20131009
  Receipt Date: 20131015
  Transmission Date: 20140711
  Serious: Yes (Other)
  Sender: FDA-Public Use
  Company Number: AUR-APL-2013-08125

PATIENT
  Age: 60 Year
  Sex: Male

DRUGS (7)
  1. RAMIPRIL [Suspect]
     Indication: HYPERTENSION
     Route: 048
     Dates: start: 20120913
  2. FELODIPINE(FELODIPINE) [Concomitant]
  3. FLUOXETINE HYDROCHLORIDE(FLUOXETINE HYDROCHLORIDE) [Concomitant]
  4. GLICLAZIDE(GLICLAZIDE) [Concomitant]
  5. METFORMIN(METFORMIN) [Concomitant]
  6. SIMVASTATIN(SIMVASTATIN) [Concomitant]
  7. SYMBICORT [Concomitant]

REACTIONS (4)
  - Cough [None]
  - Oropharyngeal pain [None]
  - Retching [None]
  - Haemoptysis [None]
